FAERS Safety Report 7137111-6 (Version None)
Quarter: 2010Q4

REPORT INFORMATION
  Report Type: 
  Country: None (occurrence: None)
  Receive Date: 20101206
  Receipt Date: 20061031
  Transmission Date: 20110411
  Serious: Yes (Death, Hospitalization)
  Sender: FDA-Public Use
  Company Number: US-ACTELION-A-US2006-13399

PATIENT

DRUGS (7)
  1. BOSENTAN TABLET 62.5 MG US [Suspect]
     Indication: PULMONARY HYPERTENSION
     Dosage: 62.5 MG, BID
     Route: 048
     Dates: start: 20050601
  2. ALEVE (CAPLET) [Concomitant]
  3. NEXIUM [Concomitant]
  4. POTASSIUM CHLORIDE [Concomitant]
  5. IRON [Concomitant]
  6. LEXAPRO [Concomitant]
  7. ATIVAN [Concomitant]

REACTIONS (5)
  - ACUTE SINUSITIS [None]
  - DEATH [None]
  - ENERGY INCREASED [None]
  - OEDEMA PERIPHERAL [None]
  - RESPIRATORY FAILURE [None]
